FAERS Safety Report 6425008-6 (Version None)
Quarter: 2009Q4

REPORT INFORMATION
  Report Type: 
  Country: None (occurrence: None)
  Receive Date: 20091030
  Receipt Date: 20091030
  Transmission Date: 20100525
  Serious: Yes (Disabling)
  Sender: FDA-Public Use
  Company Number: None

PATIENT
  Age: 46 Year
  Sex: Female
  Weight: 65.318 kg

DRUGS (1)
  1. FENTANYL-100 [Suspect]
     Indication: PAIN
     Dosage: 100 MG 1 EVERY 72 HRS SKIN
     Dates: start: 20040101

REACTIONS (2)
  - TOOTH FRACTURE [None]
  - TOOTH LOSS [None]
